FAERS Safety Report 7536161-5 (Version None)
Quarter: 2011Q2

REPORT INFORMATION
  Report Type: 
  Country: None (occurrence: None)
  Receive Date: 20110602
  Receipt Date: 20110520
  Transmission Date: 20111010
  Serious: Yes (Hospitalization)
  Sender: FDA-Public Use
  Company Number: 2011P1006696

PATIENT

DRUGS (4)
  1. ALBENDAZOLE SYRUP (NO PREF. NAME) [Suspect]
     Indication: HELMINTHIC INFECTION
     Dosage: 400 MG; PO
     Route: 048
     Dates: start: 20110121, end: 20110121
  2. ALBENZA [Suspect]
     Indication: HELMINTHIC INFECTION
     Dosage: 400 MG; PO
     Dates: start: 20110121, end: 20110121
  3. KHICHDI [Concomitant]
  4. USAL [Concomitant]

REACTIONS (1)
  - POISONING [None]
